FAERS Safety Report 16430848 (Version 1)
Quarter: 2019Q2

REPORT INFORMATION
  Report Type: Report from Study
  Country: DE (occurrence: DE)
  Receive Date: 20190614
  Receipt Date: 20190614
  Transmission Date: 20190711
  Serious: Yes (Other)
  Sender: FDA-Public Use
  Company Number: DE-PFIZER INC-2019252642

PATIENT
  Age: 7 Decade
  Sex: Male
  Weight: 57 kg

DRUGS (2)
  1. ABRAXANE [Suspect]
     Active Substance: PACLITAXEL
     Indication: PANCREATIC CARCINOMA
     Dosage: 220 MG, 1X/DAY
     Route: 041
     Dates: start: 20190204, end: 20190429
  2. OXALIPLATIN. [Suspect]
     Active Substance: OXALIPLATIN
     Indication: PANCREATIC CARCINOMA
     Dosage: 120 MG, UNK
     Route: 065
     Dates: start: 20170731, end: 20190121

REACTIONS (1)
  - Toxic neuropathy [Not Recovered/Not Resolved]

NARRATIVE: CASE EVENT DATE: 20190506
